FAERS Safety Report 21379296 (Version 2)
Quarter: 2022Q4

REPORT INFORMATION
  Report Type: Spontaneous
  Country: DE (occurrence: DE)
  Receive Date: 20220927
  Receipt Date: 20221201
  Transmission Date: 20230113
  Serious: Yes (Other)
  Sender: FDA-Public Use
  Company Number: DE-PFIZER INC-PV202200067945

PATIENT
  Age: 4 Year
  Sex: Male
  Weight: 22 kg

DRUGS (5)
  1. XELJANZ [Suspect]
     Active Substance: TOFACITINIB CITRATE
     Indication: Oligoarthritis
     Dosage: 4 ML, 2X/DAY
     Route: 048
     Dates: start: 20220807
  2. FLUTICASONE PROPIONATE\SALMETEROL XINAFOATE [Concomitant]
     Active Substance: FLUTICASONE PROPIONATE\SALMETEROL XINAFOATE
     Dosage: 2 X 2 HUB,  4X/DAY
  3. SALBUHEXAL [SALBUTAMOL] [Concomitant]
     Dosage: 2X2, 4X/DAY
  4. SPIRIVA [Concomitant]
     Active Substance: TIOTROPIUM BROMIDE MONOHYDRATE
     Dosage: 2X2, 4X/DAY
  5. FLUTICASONE PROPIONATE\FORMOTEROL FUMARATE [Concomitant]
     Active Substance: FLUTICASONE PROPIONATE\FORMOTEROL FUMARATE
     Dosage: 2X2, 4X/DAY

REACTIONS (2)
  - Seizure [Unknown]
  - Seizure [Unknown]

NARRATIVE: CASE EVENT DATE: 20220907
